FAERS Safety Report 5388823-6 (Version None)
Quarter: 2007Q3

REPORT INFORMATION
  Report Type: 
  Country: None (occurrence: None)
  Receive Date: 20070712
  Receipt Date: 20070627
  Transmission Date: 20080115
  Serious: Yes (Other)
  Sender: FDA-Public Use
  Company Number: 015446

PATIENT
  Age: 41 Year
  Sex: Male
  Weight: 86.2 kg

DRUGS (2)
  1. ZONISAMIDE [Suspect]
     Indication: CONVULSION
     Dosage: 300 MG, QD, ORAL
     Route: 048
     Dates: start: 20070516
  2. KEPPRA [Concomitant]

REACTIONS (6)
  - BALANCE DISORDER [None]
  - CONVULSION [None]
  - FATIGUE [None]
  - IRRITABILITY [None]
  - LETHARGY [None]
  - TINNITUS [None]
